FAERS Safety Report 8526023-9 (Version None)
Quarter: 2012Q3

REPORT INFORMATION
  Report Type: 
  Country: None (occurrence: None)
  Receive Date: 20120720
  Receipt Date: 20120713
  Transmission Date: 20120928
  Serious: Yes (Life-Threatening, Hospitalization, Other)
  Sender: FDA-Public Use
  Company Number: US-RB-042407-12

PATIENT
  Age: 38 Year
  Sex: Male

DRUGS (3)
  1. BENZODIAZEPINES [Suspect]
     Indication: DRUG ABUSE
     Dosage: UNKNOWN DOSAGE DETAILS
     Route: 065
     Dates: end: 20120713
  2. COCAINE [Suspect]
     Indication: DRUG ABUSE
     Dosage: UNKNOWN DOSAGE DETAILS
     Route: 065
     Dates: end: 20120713
  3. SUBOXONE [Suspect]
     Indication: PRODUCT USED FOR UNKNOWN INDICATION
     Route: 060
     Dates: start: 20110101

REACTIONS (2)
  - OVERDOSE [None]
  - LOSS OF CONSCIOUSNESS [None]
